FAERS Safety Report 15462747 (Version 3)
Quarter: 2019Q1

REPORT INFORMATION
  Report Type: Spontaneous
  Country: JP (occurrence: JP)
  Receive Date: 20181004
  Receipt Date: 20190116
  Transmission Date: 20190417
  Serious: Yes (Death, Life-Threatening, Hospitalization, Other)
  Sender: FDA-Public Use
  Company Number: JP-BRISTOL-MYERS SQUIBB COMPANY-BMS-2018-091155

PATIENT
  Age: 85 Year
  Sex: Female
  Weight: 41 kg

DRUGS (1)
  1. ELIQUIS [Suspect]
     Active Substance: APIXABAN
     Indication: CEREBROVASCULAR ACCIDENT PROPHYLAXIS
     Dosage: 2.5 MG, BID
     Route: 048
     Dates: start: 20160322, end: 20180602

REACTIONS (6)
  - Fall [Fatal]
  - Subdural haematoma [Fatal]
  - Cerebral infarction [Fatal]
  - Head injury [Fatal]
  - Pneumonia aspiration [Fatal]
  - Renal impairment [Fatal]

NARRATIVE: CASE EVENT DATE: 20180602
